FAERS Safety Report 25719711 (Version 1)
Quarter: 2025Q3

REPORT INFORMATION
  Report Type: Report from Study
  Country: GB (occurrence: GB)
  Receive Date: 20250825
  Receipt Date: 20250825
  Transmission Date: 20251021
  Serious: Yes (Hospitalization)
  Sender: CELLTRION
  Company Number: GB-CELLTRION INC.-2025GB018381

PATIENT

DRUGS (2)
  1. INFLIXIMAB-DYYB [Suspect]
     Active Substance: INFLIXIMAB-DYYB
     Indication: Crohn^s disease
     Dosage: 120MG/1ML, INJECT ONE EVERY TWO WEEKS
     Route: 058
     Dates: start: 202501
  2. INFLIXIMAB-DYYB [Suspect]
     Active Substance: INFLIXIMAB-DYYB
     Dosage: 120MG/1ML, INJECT ONE EVERY TWO WEEKS
     Route: 058
     Dates: start: 20250728

REACTIONS (5)
  - Appendix disorder [Recovering/Resolving]
  - Gastrointestinal disorder [Recovering/Resolving]
  - Abdominal pain [Unknown]
  - Fatigue [Unknown]
  - Abdominal pain upper [Unknown]

NARRATIVE: CASE EVENT DATE: 20250728
